FAERS Safety Report 6815685-X (Version None)
Quarter: 2010Q3

REPORT INFORMATION
  Report Type: 
  Country: None (occurrence: None)
  Receive Date: 20100702
  Receipt Date: 20100624
  Transmission Date: 20110219
  Serious: Yes (Hospitalization)
  Sender: FDA-Public Use
  Company Number: US-AMGEN-QUU411861

PATIENT
  Age: 55 Year
  Sex: Female

DRUGS (7)
  1. ENBREL [Suspect]
     Indication: PRODUCT USED FOR UNKNOWN INDICATION
  2. ATENOLOL [Concomitant]
  3. CHLORTHALIDONE [Concomitant]
  4. CALCIUM CARBONATE [Concomitant]
  5. FOLIC ACID [Concomitant]
  6. METHOTREXATE [Concomitant]
  7. POTASSIUM [Concomitant]

REACTIONS (1)
  - VERTIGO [None]
